FAERS Safety Report 6755026-X (Version None)
Quarter: 2010Q2

REPORT INFORMATION
  Report Type: 
  Country: None (occurrence: None)
  Receive Date: 20100604
  Receipt Date: 20100524
  Transmission Date: 20101027
  Serious: Yes (Hospitalization, Other)
  Sender: FDA-Public Use
  Company Number: BR-ABBOTT-10P-020-0634165-00

PATIENT
  Sex: Female
  Weight: 66 kg

DRUGS (10)
  1. HUMIRA [Suspect]
     Indication: CROHN'S DISEASE
     Dosage: INDUCTION DOSE 160MG
     Route: 058
     Dates: start: 20090501, end: 20090501
  2. HUMIRA [Suspect]
     Dosage: 80MG EVERY 15 DAYS FOR INITIAL 3 MONTHS
     Route: 058
     Dates: end: 20100301
  3. HUMIRA [Suspect]
     Route: 058
     Dates: start: 20100520
  4. MESALAZINE [Concomitant]
     Indication: CROHN'S DISEASE
     Route: 048
  5. MESALAZINE [Concomitant]
     Indication: ANTIINFLAMMATORY THERAPY
  6. OMEPRAZOLE [Concomitant]
     Indication: GASTRIC DISORDER
     Route: 048
  7. DEFLAZACORT [Concomitant]
     Indication: CROHN'S DISEASE
     Route: 048
  8. DEFLAZACORT [Concomitant]
     Indication: ANTIINFLAMMATORY THERAPY
  9. DIAZEPAM [Concomitant]
     Indication: ANXIOLYTIC THERAPY
     Route: 048
     Dates: start: 20100314
  10. VENLAFAXINE HYDROCHLORIDE [Concomitant]
     Indication: NEUROTRANSMITTER LEVEL ALTERED

REACTIONS (15)
  - ANAEMIA [None]
  - ANAL FISTULA [None]
  - ANAL HAEMORRHAGE [None]
  - CROHN'S DISEASE [None]
  - DECREASED IMMUNE RESPONSIVENESS [None]
  - DIARRHOEA [None]
  - DIARRHOEA HAEMORRHAGIC [None]
  - DRUG INEFFECTIVE [None]
  - ENTEROVESICAL FISTULA [None]
  - GASTROINTESTINAL INFECTION [None]
  - GASTROINTESTINAL PAIN [None]
  - HYPERTENSION [None]
  - PHARYNGITIS [None]
  - PYREXIA [None]
  - VOMITING [None]
